FAERS Safety Report 17939678 (Version 1)
Quarter: 2020Q2

REPORT INFORMATION
  Report Type: Spontaneous
  Country: US (occurrence: US)
  Receive Date: 20200625
  Receipt Date: 20200625
  Transmission Date: 20200714
  Serious: No
  Sender: FDA-Public Use
  Company Number: US-ELI_LILLY_AND_COMPANY-US202006010272

PATIENT
  Sex: Female

DRUGS (2)
  1. TRESIBA [Concomitant]
     Active Substance: INSULIN DEGLUDEC
     Indication: DIABETES MELLITUS
  2. HUMALOG [Suspect]
     Active Substance: INSULIN LISPRO
     Indication: TYPE 1 DIABETES MELLITUS
     Dosage: 5 U, PRN(BEFORE EACH MEAL)
     Route: 058
     Dates: start: 202005

REACTIONS (2)
  - Blood glucose abnormal [Recovered/Resolved]
  - Incorrect dose administered [Unknown]
